FAERS Safety Report 24789645 (Version 2)
Quarter: 2025Q3

REPORT INFORMATION
  Report Type: Report from Study
  Country: JP (occurrence: JP)
  Receive Date: 20241230
  Receipt Date: 20250805
  Transmission Date: 20251020
  Serious: Yes (Hospitalization)
  Sender: ALEXION PHARMACEUTICALS
  Company Number: JP-ASTRAZENECA-202409JPN014782JP

PATIENT
  Age: 11 Year
  Sex: Female
  Weight: 16.8 kg

DRUGS (39)
  1. STRENSIQ [Suspect]
     Active Substance: ASFOTASE ALFA
     Indication: Hypophosphatasia
     Dosage: 2 MILLIGRAM/KILOGRAM, TIW
     Dates: start: 20151002, end: 20181102
  2. STRENSIQ [Suspect]
     Active Substance: ASFOTASE ALFA
     Dates: start: 20181107, end: 20181108
  3. STRENSIQ [Suspect]
     Active Substance: ASFOTASE ALFA
     Dosage: 1.6 MILLIGRAM/KILOGRAM, TIW
     Dates: start: 20181109, end: 20181130
  4. STRENSIQ [Suspect]
     Active Substance: ASFOTASE ALFA
     Dosage: 2 MILLIGRAM/KILOGRAM, TIW
     Dates: start: 20181203
  5. PHENOBARBITAL [Concomitant]
     Active Substance: PHENOBARBITAL
     Indication: Hypophosphatasia
  6. PHENOBARBITAL [Concomitant]
     Active Substance: PHENOBARBITAL
     Dosage: 55 MILLIGRAM, BID
     Dates: start: 20180802, end: 20180809
  7. PHENOBARBITAL [Concomitant]
     Active Substance: PHENOBARBITAL
     Dosage: 27.5 MILLIGRAM, BID
     Dates: start: 20180809, end: 20180819
  8. PHENOBARBITAL [Concomitant]
     Active Substance: PHENOBARBITAL
     Dosage: 44 MILLIGRAM, BID
     Dates: start: 20180817, end: 20190226
  9. PHENOBARBITAL [Concomitant]
     Active Substance: PHENOBARBITAL
     Dosage: 45 MILLIGRAM, BID
     Dates: start: 20190227
  10. PHENOBARBITAL [Concomitant]
     Active Substance: PHENOBARBITAL
     Dosage: 50 MILLIGRAM, BID
  11. RIVOTRIL [Concomitant]
     Active Substance: CLONAZEPAM
     Indication: Hypophosphatasia
     Dosage: 2.25 MILLIGRAM, BID
  12. RIVOTRIL [Concomitant]
     Active Substance: CLONAZEPAM
     Dosage: 2.5 MILLIGRAM, BID
     Dates: start: 20180802
  13. RIVOTRIL [Concomitant]
     Active Substance: CLONAZEPAM
     Dosage: 3 MILLIGRAM, BID
     Dates: start: 20200129
  14. RIVOTRIL [Concomitant]
     Active Substance: CLONAZEPAM
     Dosage: 3.5 MILLIGRAM, BID
     Dates: start: 20211006
  15. LEVETIRACETAM [Concomitant]
     Active Substance: LEVETIRACETAM
     Indication: Hypophosphatasia
  16. LEVETIRACETAM [Concomitant]
     Active Substance: LEVETIRACETAM
     Dosage: 50 MILLIGRAM, BID
     Dates: start: 20180802, end: 20180816
  17. LEVETIRACETAM [Concomitant]
     Active Substance: LEVETIRACETAM
     Dosage: 110 MILLIGRAM, BID
     Dates: start: 20180817, end: 20190108
  18. LEVETIRACETAM [Concomitant]
     Active Substance: LEVETIRACETAM
     Dosage: 150 MILLIGRAM, BID
     Dates: start: 20190109, end: 20190216
  19. LEVETIRACETAM [Concomitant]
     Active Substance: LEVETIRACETAM
     Dosage: 225 MILLIGRAM, BID
     Dates: start: 20190217
  20. LEVETIRACETAM [Concomitant]
     Active Substance: LEVETIRACETAM
     Dosage: 300 MILLIGRAM, BID
     Dates: start: 20200226
  21. LEVETIRACETAM [Concomitant]
     Active Substance: LEVETIRACETAM
     Dosage: 400 MILLIGRAM, BID
  22. PYRIDOXINE HYDROCHLORIDE [Concomitant]
     Active Substance: PYRIDOXINE HYDROCHLORIDE
     Indication: Hypophosphatasia
     Dosage: 225 MILLIGRAM, BID
     Dates: start: 20190121
  23. Mucosal [Concomitant]
     Indication: Prophylaxis
     Dosage: 4.5 MILLIGRAM, BID
  24. Mucosal [Concomitant]
     Dosage: 3 MILLIGRAM, TID
  25. Mucosal [Concomitant]
     Dosage: 7.5 MILLIGRAM, BID
     Dates: start: 20211006
  26. CARBOCYSTEINE [Concomitant]
     Active Substance: CARBOCYSTEINE
     Indication: Prophylaxis
     Dosage: 1.25 MILLILITER, TID
  27. CARBOCYSTEINE [Concomitant]
     Active Substance: CARBOCYSTEINE
     Dosage: 100 MILLIGRAM, TID
  28. CARBOCYSTEINE [Concomitant]
     Active Substance: CARBOCYSTEINE
     Dosage: 200 MILLIGRAM, BID
     Dates: start: 20211006
  29. LEVOCARNITINE [Concomitant]
     Active Substance: LEVOCARNITINE
     Indication: Prophylaxis
     Dosage: 1 MILLILITER, TID
  30. LEVOCARNITINE [Concomitant]
     Active Substance: LEVOCARNITINE
     Dosage: 1 MILLILITER, BID
     Dates: start: 20211006
  31. ROZEREM [Concomitant]
     Active Substance: RAMELTEON
     Indication: Prophylaxis
     Dosage: 2 MILLIGRAM, QD
     Dates: start: 20180914
  32. ROZEREM [Concomitant]
     Active Substance: RAMELTEON
     Indication: Insomnia
     Dosage: 4 MILLIGRAM, QD
     Dates: start: 20211006
  33. Levetiracetam ds [Concomitant]
     Indication: Hypophosphatasia
     Dosage: 400 MILLIGRAM, BID
  34. FYCOMPA [Concomitant]
     Active Substance: PERAMPANEL
     Indication: Hypophosphatasia
     Dosage: 2 MILLIGRAM, QD
  35. FYCOMPA [Concomitant]
     Active Substance: PERAMPANEL
     Dosage: 3 MILLIGRAM, QD
  36. FYCOMPA [Concomitant]
     Active Substance: PERAMPANEL
     Dosage: 2.5 MILLIGRAM, QD
     Dates: start: 20220302
  37. AMBROXOL HYDROCHLORIDE [Concomitant]
     Active Substance: AMBROXOL HYDROCHLORIDE
     Indication: Prophylaxis
     Dosage: 0.75 MILLILITER, BID
  38. AMBROXOL HYDROCHLORIDE [Concomitant]
     Active Substance: AMBROXOL HYDROCHLORIDE
     Dosage: 7.5 MILLIGRAM, BID
  39. NITRAZEPAM [Concomitant]
     Active Substance: NITRAZEPAM
     Indication: Hypophosphatasia
     Dosage: 4 MILLIGRAM, QD
     Dates: start: 20200129, end: 20220921

REACTIONS (1)
  - Infection [Recovered/Resolved]

NARRATIVE: CASE EVENT DATE: 20211117
